FAERS Safety Report 14640027 (Version 1)
Quarter: 2018Q1

REPORT INFORMATION
  Report Type: Spontaneous
  Country: US (occurrence: US)
  Receive Date: 20180315
  Receipt Date: 20180315
  Transmission Date: 20180509
  Serious: Yes (Other)
  Sender: FDA-Public Use
  Company Number: US-BAYER-2018-047875

PATIENT
  Age: 82 Year
  Sex: Female

DRUGS (4)
  1. ACETYLSALICYLIC ACID({=100 MG) [Suspect]
     Active Substance: ASPIRIN
     Dosage: UNK, QD
  2. VISMODEGIB. [Interacting]
     Active Substance: VISMODEGIB
  3. LISINOPRIL. [Concomitant]
     Active Substance: LISINOPRIL
     Dosage: 10 MG, QD
  4. METOPROLOL TARTRATE. [Concomitant]
     Active Substance: METOPROLOL TARTRATE
     Dosage: 25 MG, BID

REACTIONS (6)
  - Drug-induced liver injury [Recovering/Resolving]
  - Duodenal ulcer [None]
  - Cholelithiasis [None]
  - Drug interaction [None]
  - Pancreatitis [None]
  - Gastric disorder [None]
